FAERS Safety Report 16460090 (Version 1)
Quarter: 2019Q2

REPORT INFORMATION
  Report Type: Spontaneous
  Country: JP (occurrence: JP)
  Receive Date: 20190620
  Receipt Date: 20190620
  Transmission Date: 20190711
  Serious: Yes (Death, Hospitalization)
  Sender: FDA-Public Use
  Company Number: JP-MYLANLABS-2019M1057273

PATIENT
  Age: 66 Year
  Sex: Female

DRUGS (1)
  1. PREDNISOLONE. [Suspect]
     Active Substance: PREDNISOLONE
     Indication: AUTOIMMUNE HEPATITIS
     Route: 065

REACTIONS (9)
  - Disseminated intravascular coagulation [Fatal]
  - Dyspnoea [Fatal]
  - Mucormycosis [Fatal]
  - Subcutaneous abscess [Recovering/Resolving]
  - Condition aggravated [Fatal]
  - Abdominal distension [Fatal]
  - Skin ulcer [Recovering/Resolving]
  - Candida infection [Recovering/Resolving]
  - Wound [Fatal]
